FAERS Safety Report 6110361-3 (Version None)
Quarter: 2009Q1

REPORT INFORMATION
  Report Type: 
  Country: None (occurrence: None)
  Receive Date: 20090310
  Receipt Date: 20090227
  Transmission Date: 20090719
  Serious: Yes (Hospitalization, Other)
  Sender: FDA-Public Use
  Company Number: DE-ELI_LILLY_AND_COMPANY-DE200903000531

PATIENT
  Age: 54 Year
  Sex: Male

DRUGS (7)
  1. CYMBALTA [Suspect]
     Indication: DEPRESSION
     Dosage: 120 MG, DAILY (1/D)
     Route: 048
     Dates: start: 20080301, end: 20080601
  2. CYMBALTA [Suspect]
     Dosage: 60 MG, DAILY (1/D)
     Route: 048
     Dates: start: 20081204, end: 20081211
  3. SEROQUEL [Concomitant]
     Dosage: 100 MG, DAILY (1/D)
     Route: 048
     Dates: start: 20081204, end: 20081211
  4. SEROQUEL [Concomitant]
     Dosage: UNK, UNKNOWN
     Route: 048
     Dates: start: 20081212
  5. RAMIPRIL [Concomitant]
     Dosage: 5 MG, DAILY (1/D)
     Route: 048
  6. BISOPROLOL [Concomitant]
     Dosage: 7.25 MG, DAILY (1/D)
     Route: 048
  7. LITHIUM CARBONATE [Concomitant]
     Dosage: UNK, UNKNOWN
     Route: 065

REACTIONS (3)
  - BIPOLAR DISORDER [None]
  - DEPRESSION [None]
  - HYPOMANIA [None]
